FAERS Safety Report 8211335-9 (Version None)
Quarter: 2012Q1

REPORT INFORMATION
  Report Type: 
  Country: None (occurrence: None)
  Receive Date: 20120315
  Receipt Date: 20120315
  Transmission Date: 20120608
  Serious: Yes (Other)
  Sender: FDA-Public Use
  Company Number: None

PATIENT

DRUGS (2)
  1. MOTRIN [Concomitant]
     Route: 048
  2. PROMETHAZINE [Suspect]
     Indication: BAROTRAUMA
     Dosage: AS NEED

REACTIONS (15)
  - TOURETTE'S DISORDER [None]
  - EYE PAIN [None]
  - BAROTRAUMA [None]
  - VOMITING [None]
  - SECRETION DISCHARGE [None]
  - TOXICITY TO VARIOUS AGENTS [None]
  - ABDOMINAL PAIN UPPER [None]
  - ABNORMAL SENSATION IN EYE [None]
  - EAR DISCOMFORT [None]
  - NERVOUSNESS [None]
  - HYPERACUSIS [None]
  - DIZZINESS [None]
  - HEADACHE [None]
  - DRY EYE [None]
  - DYSPNOEA [None]
